FAERS Safety Report 4884396-2 (Version None)
Quarter: 2006Q1

REPORT INFORMATION
  Report Type: 
  Country: None (occurrence: None)
  Receive Date: 20060117
  Receipt Date: 20060117
  Transmission Date: 20060701
  Serious: Yes (Hospitalization)
  Sender: FDA-Public Use
  Company Number: None

PATIENT
  Age: 73 Year
  Sex: Female

DRUGS (5)
  1. EFFEXOR XR [Suspect]
     Indication: ANXIETY
     Dosage: 37.5MG QD PO
     Route: 048
     Dates: start: 20040213
  2. EFFEXOR XR [Suspect]
     Indication: DEPRESSION
     Dosage: 37.5MG QD PO
     Route: 048
     Dates: start: 20040213
  3. NORVASC [Concomitant]
  4. SYNTHROID [Concomitant]
  5. ZESTRIL [Concomitant]

REACTIONS (1)
  - MYOCLONUS [None]
